FAERS Safety Report 13527193 (Version 4)
Quarter: 2017Q3

REPORT INFORMATION
  Report Type: Report from Study
  Country: BR (occurrence: BR)
  Receive Date: 20170509
  Receipt Date: 20170704
  Transmission Date: 20171127
  Serious: Yes (Other)
  Sender: FDA-Public Use
  Company Number: PHHY2017BR047818

PATIENT
  Sex: Male
  Weight: 55 kg

DRUGS (4)
  1. EXELON PATCH [Suspect]
     Active Substance: RIVASTIGMINE
     Indication: DEMENTIA ALZHEIMER^S TYPE
     Dosage: 4.6 MG, QD PATCH 5 (CM2)
     Route: 062
     Dates: start: 201701
  2. EXELON PATCH [Suspect]
     Active Substance: RIVASTIGMINE
     Indication: AGGRESSION
     Dosage: 9.5 MG, QD PATCH 10 (CM2)
     Route: 062
  3. EXELON PATCH [Suspect]
     Active Substance: RIVASTIGMINE
     Dosage: 9.5 MG, QD PATCH 10 (CM2)
     Route: 062
  4. EXELON PATCH [Suspect]
     Active Substance: RIVASTIGMINE
     Indication: AGITATION
     Dosage: 9.5 MG, QD PATCH 10 (CM2)
     Route: 062

REACTIONS (17)
  - Vein disorder [Unknown]
  - Agitation [Unknown]
  - Irritability [Unknown]
  - Restlessness [Unknown]
  - Drug ineffective [Unknown]
  - Muscular weakness [Unknown]
  - Gait inability [Unknown]
  - Poor venous access [Unknown]
  - Malaise [Unknown]
  - Headache [Unknown]
  - Abnormal behaviour [Recovering/Resolving]
  - Asthenia [Unknown]
  - Weight decreased [Unknown]
  - Application site erythema [Unknown]
  - Nervousness [Unknown]
  - Hypokinesia [Unknown]
  - Fatigue [Unknown]
